FAERS Safety Report 12273668 (Version 4)
Quarter: 2016Q3

REPORT INFORMATION
  Report Type: Report from Study
  Country: CA (occurrence: CA)
  Receive Date: 20160415
  Receipt Date: 20160712
  Transmission Date: 20161109
  Serious: Yes (Hospitalization)
  Sender: FDA-Public Use
  Company Number: PHHY2011CA64119

PATIENT
  Age: 71 Year
  Sex: Female

DRUGS (3)
  1. SANDOSTATIN LAR DEPOT [Suspect]
     Active Substance: OCTREOTIDE ACETATE
     Indication: CARCINOID TUMOUR
     Dosage: 30 MG, QMO (EVERY 4 WEEKS)
     Route: 030
     Dates: start: 20051209
  2. SANDOSTATIN LAR DEPOT [Suspect]
     Active Substance: OCTREOTIDE ACETATE
     Dosage: 30 MG, EVERY 3 WEEKS
     Route: 030
  3. LUTETIUM (LU 177) [Concomitant]
     Active Substance: LUTETIUM LU-177
     Indication: PRODUCT USED FOR UNKNOWN INDICATION
     Route: 065

REACTIONS (17)
  - Laceration [Unknown]
  - Oedema peripheral [Unknown]
  - Blood pressure systolic increased [Unknown]
  - Malaise [Unknown]
  - Fall [Unknown]
  - Fatigue [Unknown]
  - Stool analysis abnormal [Unknown]
  - Anxiety [Unknown]
  - Diarrhoea [Unknown]
  - Hypoglycaemia [Recovered/Resolved]
  - Clavicle fracture [Recovering/Resolving]
  - Inappropriate schedule of drug administration [Unknown]
  - Blood pressure diastolic decreased [Unknown]
  - Dizziness [Recovered/Resolved]
  - Underdose [Unknown]
  - Needle issue [Unknown]
  - Incorrect product storage [Unknown]

NARRATIVE: CASE EVENT DATE: 20110714
